FAERS Safety Report 18419762 (Version 5)
Quarter: 2021Q2

REPORT INFORMATION
  Report Type: Other
  Country: DE (occurrence: DE)
  Receive Date: 20201023
  Receipt Date: 20210505
  Transmission Date: 20210717
  Serious: Yes (Hospitalization)
  Sender: FDA-Public Use
  Company Number: DE-ROCHE-2332659

PATIENT
  Age: 48 Year
  Sex: Female
  Weight: 74 kg

DRUGS (21)
  1. L?THYROXIN [Concomitant]
     Active Substance: LEVOTHYROXINE SODIUM
  2. ENALAPRIL [Concomitant]
     Active Substance: ENALAPRIL
     Dosage: 10?0?5 MG
  3. ATORVASTATIN [Concomitant]
     Active Substance: ATORVASTATIN
  4. OCREVUS [Suspect]
     Active Substance: OCRELIZUMAB
     Indication: RELAPSING-REMITTING MULTIPLE SCLEROSIS
     Route: 042
     Dates: start: 20190429
  5. PANTOPRAZOL [Concomitant]
     Active Substance: PANTOPRAZOLE SODIUM
  6. OPIPRAMOL [Concomitant]
     Active Substance: OPIPRAMOL
  7. LYRICA [Concomitant]
     Active Substance: PREGABALIN
     Dosage: UP TO 4 TABLETS A DAY IF NEEDED
  8. OCREVUS [Suspect]
     Active Substance: OCRELIZUMAB
     Route: 042
     Dates: start: 20200429
  9. XELEVIA [Concomitant]
     Active Substance: SITAGLIPTIN PHOSPHATE
  10. LYRICA [Concomitant]
     Active Substance: PREGABALIN
     Dosage: UP TO 6 TABLETS A DAY IF NEEDED
  11. OCREVUS [Suspect]
     Active Substance: OCRELIZUMAB
     Route: 042
     Dates: start: 20190513
  12. JARDIANCE [Concomitant]
     Active Substance: EMPAGLIFLOZIN
  13. L?THYROXIN [Concomitant]
     Active Substance: LEVOTHYROXINE SODIUM
  14. OCREVUS [Suspect]
     Active Substance: OCRELIZUMAB
     Route: 042
  15. L?THYROXIN [Concomitant]
     Active Substance: LEVOTHYROXINE SODIUM
  16. ASPIRIN. [Concomitant]
     Active Substance: ASPIRIN
  17. ENALAPRIL [Concomitant]
     Active Substance: ENALAPRIL
     Dosage: DAYS?10?0?0.5 MG
  18. ABASAGLAR [Concomitant]
     Active Substance: INSULIN GLARGINE
     Dosage: 4?6 IU (INSULIN)
  19. LANTUS [Concomitant]
     Active Substance: INSULIN GLARGINE
     Dosage: 100E/ML
  20. TRULICITY [Concomitant]
     Active Substance: DULAGLUTIDE
  21. VITAMIN D3 [Concomitant]
     Active Substance: CHOLECALCIFEROL
     Dosage: DAYS

REACTIONS (28)
  - Oral candidiasis [Recovered/Resolved]
  - Vulvovaginal mycotic infection [Recovered/Resolved]
  - Meningitis viral [Recovered/Resolved]
  - Paraesthesia [Recovered/Resolved]
  - Pruritus [Recovering/Resolving]
  - Allergy to arthropod sting [Recovered/Resolved]
  - Sensory disturbance [Not Recovered/Not Resolved]
  - Herpes simplex [Not Recovered/Not Resolved]
  - Arthropod bite [Recovered/Resolved]
  - Blood glucose increased [Recovered/Resolved]
  - Fatigue [Recovered/Resolved]
  - Muscle spasticity [Recovered/Resolved]
  - Spinal pain [Recovered/Resolved]
  - Erythema of eyelid [Recovered/Resolved]
  - Blepharitis [Recovered/Resolved]
  - Eyelid skin dryness [Recovered/Resolved]
  - Eyelid irritation [Recovered/Resolved]
  - Biliary colic [Recovered/Resolved]
  - Injection site nodule [Recovered/Resolved]
  - Muscular weakness [Recovered/Resolved]
  - Meningism [Unknown]
  - Oropharyngeal pain [Recovered/Resolved]
  - Eyelids pruritus [Recovered/Resolved]
  - Herpes zoster [Recovered/Resolved]
  - Sepsis [Recovered/Resolved]
  - Urticaria [Recovering/Resolving]
  - Drug ineffective [Unknown]
  - Hypotonia [Recovered/Resolved]

NARRATIVE: CASE EVENT DATE: 20190429
